FAERS Safety Report 5993109-2 (Version None)
Quarter: 2008Q4

REPORT INFORMATION
  Report Type: 
  Country: None (occurrence: None)
  Receive Date: 20081212
  Receipt Date: 20081208
  Transmission Date: 20090506
  Serious: Yes (Death, Other)
  Sender: FDA-Public Use
  Company Number: CH-WYE-G02705008

PATIENT
  Age: 75 Year
  Sex: Male

DRUGS (1)
  1. TEMSIROLIMUS [Suspect]
     Indication: METASTATIC RENAL CELL CARCINOMA
     Dosage: 25 MG, FREQUENCY UNKNOWN
     Dates: start: 20081003, end: 20081110

REACTIONS (2)
  - DISEASE PROGRESSION [None]
  - MUCOSAL INFLAMMATION [None]
